FAERS Safety Report 4548997-3 (Version None)
Quarter: 2005Q1

REPORT INFORMATION
  Report Type: 
  Country: None (occurrence: None)
  Receive Date: 20050110
  Receipt Date: 20041119
  Transmission Date: 20050727
  Serious: Yes (Hospitalization)
  Sender: FDA-Public Use
  Company Number: FR-MERCK-0411FRA00074

PATIENT
  Age: 56 Year
  Sex: Female
  Weight: 71 kg

DRUGS (9)
  1. VIOXX [Suspect]
     Indication: ARTHROPATHY
     Route: 048
     Dates: end: 20041010
  2. TROXERUTIN [Concomitant]
     Route: 048
  3. ETIFOXINE [Concomitant]
     Route: 048
  4. ZOLPIDEM TARTRATE [Concomitant]
     Route: 048
  5. VANCOMYCIN [Suspect]
     Indication: MENINGITIS
     Route: 042
     Dates: start: 20041010, end: 20041012
  6. ACETAMINOPHEN [Suspect]
     Indication: HEADACHE
     Route: 048
     Dates: start: 20041010
  7. MORPHINE [Suspect]
     Indication: HEADACHE
     Route: 048
     Dates: start: 20041010
  8. CEFOTAXIME SODIUM [Suspect]
     Indication: MENINGITIS
     Route: 042
     Dates: start: 20041010
  9. NEFOPAM HYDROCHLORIDE [Suspect]
     Indication: MENINGITIS
     Route: 042
     Dates: start: 20041010

REACTIONS (5)
  - ENCEPHALOPATHY [None]
  - GRAND MAL CONVULSION [None]
  - HYPERTENSION [None]
  - LEUKOENCEPHALOPATHY [None]
  - MENINGITIS [None]
